FAERS Safety Report 14152450 (Version 2)
Quarter: 2017Q4

REPORT INFORMATION
  Report Type: Spontaneous
  Country: BR (occurrence: BR)
  Receive Date: 20171102
  Receipt Date: 20171128
  Transmission Date: 20180321
  Serious: Yes (Other)
  Sender: FDA-Public Use
  Company Number: BR-GUERBET-BR-20170426

PATIENT
  Age: 60 Year
  Sex: Female
  Weight: 56 kg

DRUGS (2)
  1. OPTIRAY [Suspect]
     Active Substance: IOVERSOL
     Indication: NUCLEAR MAGNETIC RESONANCE IMAGING
     Route: 042
     Dates: start: 20171017, end: 20171017
  2. OPTIRAY [Suspect]
     Active Substance: IOVERSOL
     Indication: COMPUTERISED TOMOGRAM

REACTIONS (4)
  - Product use in unapproved indication [Recovering/Resolving]
  - Malaise [Recovering/Resolving]
  - Rash [Recovering/Resolving]
  - Throat tightness [Recovering/Resolving]

NARRATIVE: CASE EVENT DATE: 20171017
